FAERS Safety Report 22284898 (Version 1)
Quarter: 2023Q2

REPORT INFORMATION
  Report Type: Spontaneous
  Country: US (occurrence: None)
  Receive Date: 20230503
  Receipt Date: 20230503
  Transmission Date: 20230722
  Serious: Yes (Other)
  Sender: FDA-Public Use
  Company Number: None

PATIENT
  Age: 54 Year
  Sex: Female

DRUGS (1)
  1. PROGESTERONE [Suspect]
     Active Substance: PROGESTERONE
     Dosage: FREQUENCY : DAILY;?
     Route: 048
     Dates: start: 20230303, end: 20230426

REACTIONS (2)
  - Product quality issue [None]
  - Uterine haemorrhage [None]

NARRATIVE: CASE EVENT DATE: 20230317
